FAERS Safety Report 15592303 (Version 1)
Quarter: 2018Q4

REPORT INFORMATION
  Report Type: Spontaneous
  Country: IT (occurrence: IT)
  Receive Date: 20181106
  Receipt Date: 20181106
  Transmission Date: 20190205
  Serious: Yes (Other)
  Sender: FDA-Public Use
  Company Number: IT-ELI_LILLY_AND_COMPANY-IT201810014305

PATIENT
  Age: 67 Year
  Sex: Male

DRUGS (8)
  1. LANTUS [Concomitant]
     Active Substance: INSULIN GLARGINE
     Indication: TYPE 1 DIABETES MELLITUS
     Dosage: 18 IU, DAILY
     Route: 058
  2. TOTALIP [Concomitant]
     Active Substance: ATORVASTATIN
     Dosage: UNK
  3. HUMALOG [Suspect]
     Active Substance: INSULIN LISPRO
     Indication: TYPE 1 DIABETES MELLITUS
     Dosage: 19 IU, UNKNOWN
     Route: 058
     Dates: start: 20180925, end: 20180925
  4. SELOKEN                            /00376902/ [Concomitant]
     Active Substance: METOPROLOL TARTRATE
     Dosage: UNK
  5. TRENTAL [Concomitant]
     Active Substance: PENTOXIFYLLINE
     Dosage: UNK
  6. LYRICA [Concomitant]
     Active Substance: PREGABALIN
     Dosage: UNK
  7. HUMALOG [Concomitant]
     Active Substance: INSULIN LISPRO
     Indication: TYPE 1 DIABETES MELLITUS
     Dosage: 30 IU, DAILY
     Route: 058
  8. CARDIOASPIRIN [Concomitant]
     Active Substance: ASPIRIN
     Dosage: 100 MG, UNK
     Route: 048

REACTIONS (3)
  - Sopor [Recovering/Resolving]
  - Hypoglycaemia [Recovering/Resolving]
  - Medication error [Recovering/Resolving]

NARRATIVE: CASE EVENT DATE: 20180925
